FAERS Safety Report 8734557 (Version 2)
Quarter: 2012Q4

REPORT INFORMATION
  Report Type: 
  Country: US (occurrence: US)
  Receive Date: 20120821
  Receipt Date: 20120926
  Transmission Date: 20130627
  Serious: No
  Sender: FDA-Public Use
  Company Number: US-009507513-2012SP032259

PATIENT
  Age: 74 Year
  Sex: Male

DRUGS (1)
  1. DULERA [Suspect]
     Dosage: 2 puffs , BID 100/5
     Route: 055
     Dates: start: 20120606

REACTIONS (1)
  - Tooth disorder [Recovering/Resolving]
